FAERS Safety Report 6504201-8 (Version None)
Quarter: 2009Q4

REPORT INFORMATION
  Report Type: 
  Country: None (occurrence: None)
  Receive Date: 20091217
  Receipt Date: 20091216
  Transmission Date: 20100525
  Serious: Yes (Hospitalization)
  Sender: FDA-Public Use
  Company Number: PHHO2003GB05311

PATIENT
  Sex: Female
  Weight: 66.8 kg

DRUGS (5)
  1. STARLIX [Suspect]
     Dosage: LEVEL 1
     Route: 048
     Dates: start: 20030130
  2. STARLIX [Suspect]
     Dosage: LEVEL 2
     Route: 048
     Dates: end: 20030417
  3. DIOVAN T30230+CAPS [Suspect]
     Indication: CARDIOVASCULAR DISORDER
     Dosage: LEVEL 1
     Route: 048
     Dates: start: 20030130
  4. DIOVAN T30230+CAPS [Suspect]
     Dosage: LEVEL 2
     Route: 048
     Dates: end: 20030417
  5. ASPIRIN [Concomitant]
     Dates: end: 20030417

REACTIONS (6)
  - ABDOMINAL PAIN UPPER [None]
  - DECREASED APPETITE [None]
  - HYPERHIDROSIS [None]
  - MALAISE [None]
  - URINE OUTPUT DECREASED [None]
  - VOMITING [None]
